FAERS Safety Report 14474760 (Version 3)
Quarter: 2019Q1

REPORT INFORMATION
  Report Type: Spontaneous
  Country: IT (occurrence: IT)
  Receive Date: 20180201
  Receipt Date: 20190110
  Transmission Date: 20190417
  Serious: Yes (Hospitalization)
  Sender: FDA-Public Use
  Company Number: IT-PFIZER INC-2018042085

PATIENT
  Age: 20 Year
  Sex: Female

DRUGS (2)
  1. LORAZEPAM. [Suspect]
     Active Substance: LORAZEPAM
     Dosage: 70 DF, SINGLE, TOTAL
     Route: 048
     Dates: start: 20180102, end: 20180102
  2. QUETIAPINE. [Suspect]
     Active Substance: QUETIAPINE
     Dosage: 60 DF, SINGLE, TOTAL
     Route: 048
     Dates: start: 20180102, end: 20180102

REACTIONS (4)
  - Suicide attempt [Recovered/Resolved]
  - Intentional overdose [Recovered/Resolved]
  - Sopor [Recovered/Resolved]
  - Drug abuse [Recovered/Resolved]

NARRATIVE: CASE EVENT DATE: 20180102
